FAERS Safety Report 21389084 (Version 1)
Quarter: 2022Q3

REPORT INFORMATION
  Report Type: Report from Study
  Country: DE (occurrence: DE)
  Receive Date: 20220929
  Receipt Date: 20220929
  Transmission Date: 20221027
  Serious: Yes (Hospitalization)
  Sender: FDA-Public Use
  Company Number: DE-MYLANLABS-2022M1085772

PATIENT
  Sex: Female

DRUGS (12)
  1. METHOTREXATE [Suspect]
     Active Substance: METHOTREXATE
     Indication: Rheumatoid arthritis
     Dosage: 15 MILLIGRAM , UNIT DOSE :   15 MG, THERAPY END DATE : NASK
     Route: 065
     Dates: start: 20190411
  2. METHOTREXATE [Suspect]
     Active Substance: METHOTREXATE
     Dosage: 15 MILLIGRAM , UNIT DOSE :   15 MG, THERAPY END DATE : ASKU
     Route: 065
     Dates: start: 20151028
  3. METHOTREXATE [Suspect]
     Active Substance: METHOTREXATE
     Dosage: 15 MILLIGRAM , UNIT DOSE :   15 MG, THERAPY END DATE : NASK
     Route: 065
     Dates: start: 20160420
  4. METHOTREXATE [Suspect]
     Active Substance: METHOTREXATE
     Dosage: 15 MILLIGRAM , UNIT DOSE :   15 MG, THERAPY END DATE : NASK
     Route: 065
     Dates: start: 20161027
  5. METHOTREXATE [Suspect]
     Active Substance: METHOTREXATE
     Dosage: 15 MILLIGRAM, UNIT DOSE :   15 MG, THERAPY END DATE : NASK
     Route: 065
     Dates: start: 20191016
  6. METHOTREXATE [Suspect]
     Active Substance: METHOTREXATE
     Dosage: 15 MILLIGRAM , UNIT DOSE :   15 MG, THERAPY END DATE : NASK
     Route: 065
     Dates: start: 20160127
  7. METHOTREXATE [Suspect]
     Active Substance: METHOTREXATE
     Dosage: 15 MILLIGRAM , UNIT DOSE :   15 MG, THERAPY END DATE : NASK
     Route: 065
     Dates: start: 20170420
  8. LEFLUNOMIDE [Suspect]
     Active Substance: LEFLUNOMIDE
     Indication: Rheumatoid arthritis
     Dosage: 20 MILLIGRAM , UNIT DOSE :   20 MG, THERAPY END DATE : NASK
     Route: 065
     Dates: start: 20161027
  9. LEFLUNOMIDE [Suspect]
     Active Substance: LEFLUNOMIDE
     Dosage: 20 MILLIGRAM, UNIT DOSE :   20 MG, THERAPY END DATE : NASK
     Route: 065
     Dates: start: 20160420
  10. LEFLUNOMIDE [Suspect]
     Active Substance: LEFLUNOMIDE
     Dosage: 20 MILLIGRAM , UNIT DOSE :   20 MG, THERAPY END DATE : NASK
     Route: 065
     Dates: start: 20170420
  11. LEFLUNOMIDE [Suspect]
     Active Substance: LEFLUNOMIDE
     Dosage: 20 MILLIGRAM , UNIT DOSE :   20 MG, THERAPY END DATE : NASK
     Route: 065
     Dates: start: 20151028
  12. LEFLUNOMIDE [Suspect]
     Active Substance: LEFLUNOMIDE
     Dosage: 20 MILLIGRAM , UNIT DOSE :   20 MG, THERAPY END DATE : NASK
     Route: 065
     Dates: start: 20160127

REACTIONS (1)
  - Adenocarcinoma of colon [Unknown]

NARRATIVE: CASE EVENT DATE: 20181216
